FAERS Safety Report 7202081-9 (Version None)
Quarter: 2010Q4

REPORT INFORMATION
  Report Type: 
  Country: None (occurrence: None)
  Receive Date: 20101216
  Receipt Date: 20101201
  Transmission Date: 20110411
  Serious: Yes (Hospitalization)
  Sender: FDA-Public Use
  Company Number: AUR-APL-2010-02998

PATIENT
  Age: 25 Year
  Sex: Female

DRUGS (1)
  1. AMLODIPINE [Suspect]
     Dosage: 30 TABS - ONCE - ORAL
     Route: 048

REACTIONS (5)
  - DRUG TOXICITY [None]
  - OVERDOSE [None]
  - SEPSIS [None]
  - SHOCK [None]
  - SINUS TACHYCARDIA [None]
